FAERS Safety Report 8205504-1 (Version None)
Quarter: 2012Q1

REPORT INFORMATION
  Report Type: 
  Country: None (occurrence: None)
  Receive Date: 20120313
  Receipt Date: 20120305
  Transmission Date: 20120608
  Serious: Yes (Hospitalization)
  Sender: FDA-Public Use
  Company Number: FR-EISAI INC-E3810-05369-SPO-FR

PATIENT
  Sex: Female

DRUGS (7)
  1. RABEPRAZOLE SODIUM [Suspect]
     Route: 048
     Dates: start: 20120121
  2. NEXIUM [Suspect]
     Indication: ILL-DEFINED DISORDER
     Route: 048
     Dates: end: 20120120
  3. AMLODIPINE [Concomitant]
  4. COVERAM [Suspect]
     Indication: ILL-DEFINED DISORDER
     Route: 048
  5. LASIX [Suspect]
     Indication: ILL-DEFINED DISORDER
     Route: 042
     Dates: start: 20120129
  6. DIGOXIN [Concomitant]
  7. PREVISCAN [Concomitant]

REACTIONS (1)
  - HYPONATRAEMIA [None]
